FAERS Safety Report 14362325 (Version 1)
Quarter: 2018Q1

REPORT INFORMATION
  Report Type: Spontaneous
  Country: HR (occurrence: HR)
  Receive Date: 20180108
  Receipt Date: 20180108
  Transmission Date: 20180509
  Serious: Yes (Life-Threatening)
  Sender: FDA-Public Use
  Company Number: HR-CIPLA LTD.-2017HR30722

PATIENT

DRUGS (3)
  1. SERTRALINE [Suspect]
     Active Substance: SERTRALINE HYDROCHLORIDE
     Dosage: UNKNOWN
     Route: 048
     Dates: start: 20171126, end: 20171126
  2. XANAX [Suspect]
     Active Substance: ALPRAZOLAM
     Dosage: UNKNOWN
     Route: 048
     Dates: start: 20171126, end: 20171126
  3. HELEX [Suspect]
     Active Substance: ALPRAZOLAM
     Dosage: UNKNOWN
     Route: 048
     Dates: start: 20171126, end: 20171126

REACTIONS (5)
  - Intentional overdose [Unknown]
  - Somnolence [Unknown]
  - Miosis [Unknown]
  - Suicide attempt [Unknown]
  - Acidosis [Unknown]

NARRATIVE: CASE EVENT DATE: 20171126
